FAERS Safety Report 8330276-X (Version None)
Quarter: 2012Q2

REPORT INFORMATION
  Report Type: 
  Country: None (occurrence: None)
  Receive Date: 20120502
  Receipt Date: 20120422
  Transmission Date: 20120825
  Serious: Yes (Hospitalization, Other)
  Sender: FDA-Public Use
  Company Number: JP-CELGENEUS-087-50794-11081860

PATIENT
  Sex: Male
  Weight: 55 kg

DRUGS (21)
  1. VIDAZA [Suspect]
     Dosage: 75 MILLIGRAM/SQ. METER
     Route: 041
     Dates: start: 20110425, end: 20110501
  2. DECADRON [Concomitant]
     Route: 065
     Dates: start: 20110402, end: 20110403
  3. DECADRON [Concomitant]
     Route: 065
     Dates: start: 20110404, end: 20110405
  4. ARGATROBAN [Concomitant]
     Route: 065
     Dates: start: 20110813, end: 20110818
  5. RADICUT [Concomitant]
     Route: 065
     Dates: start: 20110812, end: 20110824
  6. LANSOPRAZOLE [Concomitant]
     Route: 065
     Dates: start: 20110811
  7. VIDAZA [Suspect]
     Dosage: 75 MILLIGRAM/SQ. METER
     Route: 041
     Dates: start: 20110530, end: 20110607
  8. ALOXI [Concomitant]
     Route: 065
     Dates: start: 20110328, end: 20110328
  9. DECADRON [Concomitant]
     Route: 065
     Dates: start: 20110329, end: 20110330
  10. DECADRON [Concomitant]
     Route: 065
     Dates: start: 20110331, end: 20110401
  11. VIDAZA [Suspect]
     Dosage: 75 MILLIGRAM/SQ. METER
     Route: 041
     Dates: start: 20110328, end: 20110403
  12. DEXAMETHASONE SODIUM PHOSPHATE [Concomitant]
     Route: 065
     Dates: start: 20110328, end: 20110328
  13. GRANISETRON [Concomitant]
     Route: 065
     Dates: start: 20110627, end: 20110705
  14. PLETAL [Concomitant]
     Route: 065
     Dates: start: 20110811
  15. VIDAZA [Suspect]
     Dosage: 75 MILLIGRAM/SQ. METER
     Route: 041
     Dates: start: 20110801, end: 20110809
  16. ARGATROBAN [Concomitant]
     Route: 065
     Dates: start: 20110811, end: 20110811
  17. ARGATROBAN [Concomitant]
     Route: 065
     Dates: start: 20110812, end: 20110812
  18. RADICUT [Concomitant]
     Route: 065
     Dates: start: 20110811, end: 20110811
  19. VIDAZA [Suspect]
     Dosage: 75 MILLIGRAM/SQ. METER
     Route: 041
     Dates: start: 20110627, end: 20110705
  20. GRANISETRON [Concomitant]
     Route: 065
     Dates: start: 20110801, end: 20110809
  21. GRANISETRON [Concomitant]
     Route: 065
     Dates: start: 20110530, end: 20110607

REACTIONS (8)
  - WHITE BLOOD CELL COUNT DECREASED [None]
  - CEREBRAL INFARCTION [None]
  - BLOOD CHLORIDE DECREASED [None]
  - RED BLOOD CELL COUNT DECREASED [None]
  - PLATELET COUNT DECREASED [None]
  - HAEMOGLOBIN DECREASED [None]
  - BLOOD SODIUM DECREASED [None]
  - NEUTROPHIL COUNT DECREASED [None]
